FAERS Safety Report 7659156-X (Version None)
Quarter: 2011Q3

REPORT INFORMATION
  Report Type: 
  Country: None (occurrence: None)
  Receive Date: 20110805
  Receipt Date: 20110801
  Transmission Date: 20111222
  Serious: Yes (Hospitalization)
  Sender: FDA-Public Use
  Company Number: FR-GLAXOSMITHKLINE-B0736202A

PATIENT
  Sex: Female

DRUGS (9)
  1. PREVISCAN [Suspect]
     Indication: ISCHAEMIC STROKE
     Dosage: 15MG PER DAY
     Route: 048
     Dates: start: 20090101, end: 20110707
  2. ASPIRIN [Suspect]
     Indication: ISCHAEMIC STROKE
     Dosage: 75MG PER DAY
     Route: 048
     Dates: start: 20090101, end: 20110707
  3. ALENDRONATE SODIUM [Concomitant]
     Dosage: 1UNIT PER DAY
     Route: 048
     Dates: start: 20090101
  4. AMLODIPINE BESYLATE [Concomitant]
     Indication: HYPERTENSION
     Dosage: 5MG PER DAY
     Route: 048
     Dates: start: 20090101
  5. MOVIPREP [Concomitant]
     Dosage: 1SAC TWICE PER DAY
     Route: 048
     Dates: start: 20090101
  6. PAROXETINE HCL [Suspect]
     Indication: DEPRESSION
     Dosage: 20MG PER DAY
     Route: 048
     Dates: start: 20090101
  7. AUGMENTIN '125' [Suspect]
     Indication: BRONCHITIS
     Dosage: 1G THREE TIMES PER DAY
     Route: 048
     Dates: start: 20110701, end: 20110708
  8. ACETAMINOPHEN [Concomitant]
     Dosage: 1G THREE TIMES PER DAY
     Route: 048
  9. TRIVASTAL LP [Concomitant]
     Dosage: 50MG PER DAY
     Route: 048
     Dates: start: 20090101, end: 20110708

REACTIONS (5)
  - DRUG INTERACTION [None]
  - TRAUMATIC HAEMATOMA [None]
  - INTERNATIONAL NORMALISED RATIO INCREASED [None]
  - ANAEMIA [None]
  - ANTICOAGULATION DRUG LEVEL ABOVE THERAPEUTIC [None]
